FAERS Safety Report 4775607-2 (Version None)
Quarter: 2005Q3

REPORT INFORMATION
  Report Type: 
  Country: None (occurrence: None)
  Receive Date: 20050919
  Receipt Date: 20050919
  Transmission Date: 20060218
  Serious: Yes (Congenital Anomaly)
  Sender: FDA-Public Use
  Company Number: None

PATIENT
  Sex: Female
  Weight: 58.9676 kg

DRUGS (4)
  1. BRETHINE [Suspect]
     Indication: CERVICAL INCOMPETENCE
     Dosage: 250ML EVERY 4 HRSW/84 MLCO SQ
     Route: 058
     Dates: start: 20020221, end: 20020618
  2. BRETHINE [Suspect]
     Indication: PREMATURE LABOUR
     Dosage: 250ML EVERY 4 HRSW/84 MLCO SQ
     Route: 058
     Dates: start: 20020221, end: 20020618
  3. ALDAMET [Concomitant]
  4. INSULIN [Concomitant]

REACTIONS (6)
  - ARRHYTHMIA [None]
  - DRUG EXPOSURE DURING PREGNANCY [None]
  - GESTATIONAL DIABETES [None]
  - HYPERTENSION [None]
  - LIVER DISORDER [None]
  - PRE-ECLAMPSIA [None]
